FAERS Safety Report 20488946 (Version 3)
Quarter: 2022Q2

REPORT INFORMATION
  Report Type: Report from Study
  Country: None (occurrence: FR)
  Receive Date: 20220218
  Receipt Date: 20220511
  Transmission Date: 20220721
  Serious: Yes (Disabling, Other)
  Sender: FDA-Public Use
  Company Number: FR-AKCEA THERAPEUTICS, INC.-2022IS001196

PATIENT
  Age: 68 Year
  Sex: Male

DRUGS (3)
  1. TEGSEDI [Suspect]
     Active Substance: INOTERSEN SODIUM
     Indication: Amyloidosis
     Route: 058
     Dates: start: 20181212, end: 20220210
  2. DEVICE [Suspect]
     Active Substance: DEVICE
  3. TAFAMIDIS [Concomitant]
     Active Substance: TAFAMIDIS
     Route: 065

REACTIONS (7)
  - Diarrhoea [Recovered/Resolved]
  - Feeling cold [Unknown]
  - Autonomic nervous system imbalance [Unknown]
  - Musculoskeletal stiffness [Unknown]
  - Influenza like illness [Unknown]
  - Gastrointestinal disorder [Unknown]
  - Fatigue [Unknown]
